FAERS Safety Report 15637850 (Version 1)
Quarter: 2018Q4

REPORT INFORMATION
  Report Type: Spontaneous
  Country: US (occurrence: US)
  Receive Date: 20181120
  Receipt Date: 20181120
  Transmission Date: 20190205
  Serious: No
  Sender: FDA-Public Use
  Company Number: US-JNJFOC-20180637766

PATIENT
  Sex: Female

DRUGS (18)
  1. ACETAMINOPHEN. [Concomitant]
     Active Substance: ACETAMINOPHEN
  2. IMBRUVICA [Suspect]
     Active Substance: IBRUTINIB
     Indication: B-CELL LYMPHOMA
     Route: 048
  3. LOVASTATIN. [Concomitant]
     Active Substance: LOVASTATIN
  4. LORATADINE. [Concomitant]
     Active Substance: LORATADINE
  5. ASPIRIN. [Concomitant]
     Active Substance: ASPIRIN
  6. BIOTIN [Concomitant]
     Active Substance: BIOTIN
  7. VITAMIN B COMPLEX [Concomitant]
     Active Substance: CYANOCOBALAMIN\DEXPANTHENOL\NIACINAMIDE\PYRIDOXINE HYDROCHLORIDE\RIBOFLAVIN 5^-PHOSPHATE SODIUM\THIAMINE HYDROCHLORIDE\VITAMIN B COMPLEX
  8. CALCIUM [Concomitant]
     Active Substance: CALCIUM
  9. FLUOXETINE [Concomitant]
     Active Substance: FLUOXETINE HYDROCHLORIDE
  10. GLUCOSAMINE [Concomitant]
     Active Substance: GLUCOSAMINE
  11. MAGNESIUM [Concomitant]
     Active Substance: MAGNESIUM
  12. YUVAFEM [Concomitant]
     Active Substance: ESTRADIOL HEMIHYDRATE
  13. MELATONIN [Concomitant]
     Active Substance: MELATONIN
  14. OCUVITE [Concomitant]
     Active Substance: VITAMINS
  15. IMBRUVICA [Suspect]
     Active Substance: IBRUTINIB
     Indication: B-CELL LYMPHOMA
     Route: 048
     Dates: start: 20180426
  16. FISH OIL [Concomitant]
     Active Substance: FISH OIL
  17. NIFEDIPINE. [Concomitant]
     Active Substance: NIFEDIPINE
  18. MULTIVITAMINS [Concomitant]
     Active Substance: VITAMINS

REACTIONS (1)
  - Peripheral swelling [Unknown]
